FAERS Safety Report 8360324-2 (Version None)
Quarter: 2012Q2

REPORT INFORMATION
  Report Type: 
  Country: None (occurrence: None)
  Receive Date: 20120515
  Receipt Date: 20120508
  Transmission Date: 20120825
  Serious: Yes (Hospitalization)
  Sender: FDA-Public Use
  Company Number: US-AMGEN-USASP2012029207

PATIENT
  Age: 67 Year
  Sex: Female
  Weight: 52.608 kg

DRUGS (7)
  1. FLUOXETINE HYDROCHLORIDE [Concomitant]
     Indication: MIGRAINE
     Dosage: 1 MG, UNK
  2. DULOXETINE HYDROCHLORIDE [Concomitant]
     Dosage: UNK
  3. HUMIRA [Concomitant]
     Indication: RHEUMATOID ARTHRITIS
     Dosage: 40 MG, ONCE IN TWO WEEKS.
     Route: 058
     Dates: start: 20120130
  4. PRILOSEC [Concomitant]
     Dosage: UNK
  5. LEVOTHYROXINE SODIUM [Concomitant]
     Dosage: UNK
  6. FENTANYL-100 [Concomitant]
     Indication: ARTHRALGIA
     Dosage: UNK
  7. ENBREL [Suspect]
     Indication: RHEUMATOID ARTHRITIS
     Dosage: UNK
     Dates: start: 20111001, end: 20120101

REACTIONS (5)
  - HYPOTENSION [None]
  - PNEUMONIA [None]
  - SEPSIS [None]
  - DRUG INEFFECTIVE [None]
  - DEPRESSION [None]
